FAERS Safety Report 4992521-8 (Version None)
Quarter: 2006Q1

REPORT INFORMATION
  Report Type: 
  Country: None (occurrence: None)
  Receive Date: 20060314
  Receipt Date: 20060131
  Transmission Date: 20060701
  Serious: No
  Sender: FDA-Public Use
  Company Number: 2006-00106

PATIENT
  Age: 47 Year
  Sex: Male
  Weight: 98 kg

DRUGS (3)
  1. VELCADE [Suspect]
     Indication: MULTIPLE MYELOMA
     Dosage: 1.30 MG/M2, IV BOLUS
     Route: 040
     Dates: start: 20051017, end: 20060113
  2. PROCRIT [Concomitant]
  3. ZOMETA [Concomitant]

REACTIONS (1)
  - NEUTROPHIL COUNT DECREASED [None]
